FAERS Safety Report 13257429 (Version 2)
Quarter: 2017Q1

REPORT INFORMATION
  Report Type: Spontaneous
  Country: GB (occurrence: GB)
  Receive Date: 20170221
  Receipt Date: 20170222
  Transmission Date: 20170428
  Serious: Yes (Other)
  Sender: FDA-Public Use
  Company Number: GB-PFIZER INC-2017073738

PATIENT
  Age: 18 Year
  Sex: Male
  Weight: 74 kg

DRUGS (6)
  1. PREGABALIN. [Suspect]
     Active Substance: PREGABALIN
     Indication: PAIN
     Dosage: UNK
     Dates: start: 20170207
  2. SALAMOL /00139501/ [Concomitant]
     Dosage: 1 TO 2 PUFFS UP TO 4 TIMES DAILY, AS NEEDED
     Dates: start: 20160525
  3. CLENIL MODULITE [Concomitant]
     Active Substance: BECLOMETHASONE DIPROPIONATE
     Indication: ASTHMA PROPHYLAXIS
     Dosage: TWICE A DAY AS DIRECTED
     Route: 055
     Dates: start: 20160525
  4. GABAPENTIN. [Concomitant]
     Active Substance: GABAPENTIN
     Dosage: 1 DF, 3X/DAY
     Dates: start: 20170207
  5. CIPROFLOXACIN. [Concomitant]
     Active Substance: CIPROFLOXACIN
     Dosage: 1 DF, 2X/DAY
     Dates: start: 20170123, end: 20170124
  6. AMITRIPTYLINE HYDROCHLORIDE. [Concomitant]
     Active Substance: AMITRIPTYLINE HYDROCHLORIDE
     Dosage: ONE AT NIGHT AND INCREASE BY ONE EVERY WEEK, MAXIMUM 5.
     Dates: start: 20160602, end: 20170123

REACTIONS (3)
  - Epistaxis [Recovered/Resolved]
  - Eye contusion [Unknown]
  - Malaise [Unknown]

NARRATIVE: CASE EVENT DATE: 20170207
